FAERS Safety Report 18953859 (Version 1)
Quarter: 2021Q1

REPORT INFORMATION
  Report Type: Spontaneous
  Country: NI (occurrence: NI)
  Receive Date: 20210301
  Receipt Date: 20210301
  Transmission Date: 20210420
  Serious: Yes (Death)
  Sender: FDA-Public Use
  Company Number: NVSC2021NI045169

PATIENT
  Age: 46 Year
  Sex: Male

DRUGS (1)
  1. GLIVEC [Suspect]
     Active Substance: IMATINIB MESYLATE
     Indication: CHRONIC MYELOID LEUKAEMIA
     Dosage: 1 DF (1 OF 400 MG)
     Route: 065

REACTIONS (2)
  - Product administration interrupted [Unknown]
  - Death [Fatal]

NARRATIVE: CASE EVENT DATE: 202010
